FAERS Safety Report 5120328-X (Version None)
Quarter: 2006Q4

REPORT INFORMATION
  Report Type: 
  Country: None (occurrence: None)
  Receive Date: 20061002
  Receipt Date: 20061002
  Transmission Date: 20070319
  Serious: Yes (Life-Threatening)
  Sender: FDA-Public Use
  Company Number: None

PATIENT
  Age: 75 Year
  Sex: Male
  Weight: 54.2 kg

DRUGS (1)
  1. OMNIPAQUE 140 [Suspect]
     Indication: SCAN WITH CONTRAST
     Dates: start: 20060823

REACTIONS (5)
  - CARDIO-RESPIRATORY ARREST [None]
  - CHEST PAIN [None]
  - DYSPNOEA [None]
  - ERYTHEMA [None]
  - FEELING HOT [None]
